APPROVED DRUG PRODUCT: EPTIFIBATIDE
Active Ingredient: EPTIFIBATIDE
Strength: 2MG/ML
Dosage Form/Route: INJECTABLE;INJECTION
Application: A209864 | Product #001 | TE Code: AP
Applicant: SLATE RUN PHARMACEUTICALS LLC
Approved: Jan 25, 2019 | RLD: No | RS: No | Type: RX